FAERS Safety Report 21105335 (Version 1)
Quarter: 2022Q3

REPORT INFORMATION
  Report Type: Spontaneous
  Country: US (occurrence: US)
  Receive Date: 20220720
  Receipt Date: 20220720
  Transmission Date: 20221027
  Serious: No
  Sender: FDA-Public Use
  Company Number: US-SA-SAC20220711001102

PATIENT

DRUGS (1)
  1. LARONIDASE [Suspect]
     Active Substance: LARONIDASE
     Indication: Mucopolysaccharidosis I
     Dosage: 46.4 UNK, QW
     Route: 042
     Dates: start: 20071026

REACTIONS (1)
  - Eye operation [Recovering/Resolving]

NARRATIVE: CASE EVENT DATE: 20220701
